FAERS Safety Report 5607498-1 (Version None)
Quarter: 2008Q1

REPORT INFORMATION
  Report Type: 
  Country: None (occurrence: None)
  Receive Date: 20080125
  Receipt Date: 20080111
  Transmission Date: 20080703
  Serious: Yes (Hospitalization)
  Sender: FDA-Public Use
  Company Number: 2007BI020839

PATIENT
  Age: 59 Year
  Sex: Female

DRUGS (1)
  1. TYSABRI [Suspect]
     Indication: MULTIPLE SCLEROSIS
     Dosage: 300 MG; QM; IV
     Route: 042
     Dates: start: 20070618

REACTIONS (13)
  - BALANCE DISORDER [None]
  - CYSTOCELE [None]
  - ENTEROCELE [None]
  - FALL [None]
  - FATIGUE [None]
  - HYPOTENSION [None]
  - MUSCULOSKELETAL STIFFNESS [None]
  - PAIN [None]
  - PARAESTHESIA [None]
  - PRURITUS [None]
  - RECTOCELE [None]
  - SPEECH DISORDER [None]
  - URINARY TRACT INFECTION [None]
